FAERS Safety Report 8285955-X (Version None)
Quarter: 2012Q2

REPORT INFORMATION
  Report Type: 
  Country: None (occurrence: None)
  Receive Date: 20120415
  Receipt Date: 20120406
  Transmission Date: 20120825
  Serious: Yes (Other)
  Sender: FDA-Public Use
  Company Number: FR-BRISTOL-MYERS SQUIBB COMPANY-16480998

PATIENT
  Age: 8 Month
  Sex: Female
  Weight: 1 kg

DRUGS (15)
  1. IMURAN [Suspect]
     Dosage: FILM COATED TABLET
     Route: 064
     Dates: end: 20110630
  2. ASPIRIN [Suspect]
     Dosage: FORM: POWDER FOR ORAL SOLUTION SACHET
     Route: 064
     Dates: end: 20110630
  3. ERGOCALCIFEROL [Concomitant]
  4. CREON [Concomitant]
     Dosage: 1 DF= 15 CAPS
  5. TOCO [Concomitant]
     Dosage: FORM: TOCO 500
  6. AMLODIPINE BESYLATE [Suspect]
     Dosage: CAPSULE
     Route: 064
     Dates: end: 20110630
  7. PRAVASTATIN [Suspect]
     Dosage: FORM: SCORED TABS
     Route: 064
     Dates: end: 20110630
  8. MUCOMYST [Suspect]
     Dosage: 3 SACHETS 3 TIMES A DAY
     Route: 064
     Dates: end: 20110630
  9. COLIMYCINE [Suspect]
     Dosage: 1 DF= 1 MIU. FORM: POWDER AND SOLVENT FOR NEBULIZER SOLUTION
     Route: 064
     Dates: end: 20110630
  10. INSULATARD NPH HUMAN [Suspect]
     Dosage: 8IU MORNING + 4IU EVENING
     Route: 064
     Dates: end: 20110630
  11. TACROLIMUS [Suspect]
     Dosage: INCREASED TO 12MG/DAY ON 20MAY11
     Route: 064
     Dates: end: 20110630
  12. TRANDATE [Suspect]
     Route: 064
     Dates: end: 20110630
  13. PREDNISONE TAB [Suspect]
     Route: 064
     Dates: end: 20110630
  14. CALCIUM CARBONATE [Concomitant]
  15. URSOLVAN [Concomitant]
     Dosage: 1 DF= 2 TABS

REACTIONS (1)
  - FOETAL GROWTH RESTRICTION [None]
